FAERS Safety Report 5418992-0 (Version None)
Quarter: 2007Q3

REPORT INFORMATION
  Report Type: 
  Country: None (occurrence: None)
  Receive Date: 20070817
  Receipt Date: 20070807
  Transmission Date: 20080115
  Serious: Yes (Other)
  Sender: FDA-Public Use
  Company Number: US-PFIZER INC-2007066502

PATIENT
  Sex: Male
  Weight: 97.727 kg

DRUGS (8)
  1. NEURONTIN [Suspect]
     Indication: NEUROPATHY PERIPHERAL
  2. GABAPENTIN [Suspect]
     Indication: NEURALGIA
  3. FENOFIBRATE [Concomitant]
  4. FUROSEMIDE [Concomitant]
  5. PERCOCET [Concomitant]
  6. BENICAR [Concomitant]
  7. GLUCOTROL XL [Concomitant]
  8. ACTOS [Concomitant]

REACTIONS (7)
  - ABASIA [None]
  - ACTIVITIES OF DAILY LIVING IMPAIRED [None]
  - AGITATION [None]
  - DRUG INEFFECTIVE [None]
  - INTERVERTEBRAL DISC COMPRESSION [None]
  - MALAISE [None]
  - WEIGHT INCREASED [None]
